FAERS Safety Report 8054132-X (Version None)
Quarter: 2012Q1

REPORT INFORMATION
  Report Type: 
  Country: None (occurrence: None)
  Receive Date: 20120118
  Receipt Date: 20120110
  Transmission Date: 20120608
  Serious: Yes (Hospitalization)
  Sender: FDA-Public Use
  Company Number: US-JNJFOC-20111012221

PATIENT
  Sex: Female
  Weight: 36.6 kg

DRUGS (21)
  1. PREDNISONE [Suspect]
     Indication: PRODUCT USED FOR UNKNOWN INDICATION
  2. FOLIC ACID [Concomitant]
  3. KETOROLAC TROMETHAMINE [Concomitant]
  4. ONDANSETRON [Concomitant]
  5. METHOTREXATE [Suspect]
     Indication: PRODUCT USED FOR UNKNOWN INDICATION
  6. PREVACID [Concomitant]
  7. A MULTIVITAMIN [Concomitant]
  8. MORPHINE [Concomitant]
  9. HYDROCORTISONE [Suspect]
     Indication: PRODUCT USED FOR UNKNOWN INDICATION
  10. LORAZEPAM [Concomitant]
  11. ACETAMINOPHEN [Concomitant]
  12. INFLIXIMAB, RECOMBINANT [Suspect]
     Indication: INFLAMMATORY BOWEL DISEASE
     Route: 042
     Dates: start: 20080205, end: 20090114
  13. CHOLECALCIFEROL [Concomitant]
  14. CEFTRIAXONE [Concomitant]
  15. BISACODYL [Concomitant]
  16. HUMIRA [Suspect]
     Indication: PRODUCT USED FOR UNKNOWN INDICATION
     Dates: start: 20090218, end: 20111001
  17. ANTIBIOTICS [Concomitant]
     Indication: INFLAMMATORY BOWEL DISEASE
  18. PEPTAMEN [Concomitant]
  19. FISH OIL [Concomitant]
  20. NALBUPHINE [Concomitant]
  21. RANITIDINE [Concomitant]

REACTIONS (2)
  - INTESTINAL STENOSIS [None]
  - ANASTOMOTIC LEAK [None]
